FAERS Safety Report 13757018 (Version 1)
Quarter: 2017Q3

REPORT INFORMATION
  Report Type: Other
  Country: GB (occurrence: KR)
  Receive Date: 20170714
  Receipt Date: 20170714
  Transmission Date: 20171127
  Serious: Yes (Life-Threatening)
  Sender: FDA-Public Use
  Company Number: KR-INTERNATIONAL MEDICATION SYSTEMS, LIMITED-2023403

PATIENT
  Age: 56 Year
  Sex: Male
  Weight: 58.8 kg

DRUGS (14)
  1. REMIFENTANIL [Concomitant]
     Active Substance: REMIFENTANIL
  2. DESFLURANE. [Concomitant]
     Active Substance: DESFLURANE
  3. EPINEPHRINE. [Suspect]
     Active Substance: EPINEPHRINE
     Route: 040
  4. DANTROLENE SODIUM. [Concomitant]
     Active Substance: DANTROLENE SODIUM
     Route: 042
  5. FUROSEMIDE. [Concomitant]
     Active Substance: FUROSEMIDE
  6. EPINEPHRINE. [Suspect]
     Active Substance: EPINEPHRINE
     Route: 042
  7. VASOPRESSIN. [Suspect]
     Active Substance: VASOPRESSIN
  8. SODIUM HYDROGEN CARBONATE [Concomitant]
     Active Substance: SODIUM BICARBONATE
  9. INSULIN INJECTION SOLUBLE [Concomitant]
     Route: 042
  10. DANTROLENE SODIUM. [Concomitant]
     Active Substance: DANTROLENE SODIUM
  11. OXYGEN. [Concomitant]
     Active Substance: OXYGEN
  12. EPINEPHRINE. [Suspect]
     Active Substance: EPINEPHRINE
     Route: 042
  13. NOREPINEPHRINE. [Suspect]
     Active Substance: NOREPINEPHRINE
  14. FRESOFOL [Concomitant]

REACTIONS (1)
  - Drug ineffective [Unknown]
